FAERS Safety Report 4778058-X (Version None)
Quarter: 2005Q3

REPORT INFORMATION
  Report Type: 
  Country: None (occurrence: None)
  Receive Date: 20050921
  Receipt Date: 20050912
  Transmission Date: 20060218
  Serious: Yes (Hospitalization)
  Sender: FDA-Public Use
  Company Number: 234014K05USA

PATIENT
  Age: 30 Year
  Sex: Male

DRUGS (3)
  1. REBIF [Suspect]
     Indication: MULTIPLE SCLEROSIS
     Dosage: 44 MCG, 3 IN 1 WEEKS, SUBCUTANEOUS
     Route: 058
     Dates: start: 20050506
  2. DILANTIN [Concomitant]
  3. DEPAKOTE [Concomitant]

REACTIONS (5)
  - ACCIDENT [None]
  - CLOSED HEAD INJURY [None]
  - CONTUSION [None]
  - FALL [None]
  - HEADACHE [None]
